FAERS Safety Report 5226894-8 (Version None)
Quarter: 2007Q1

REPORT INFORMATION
  Report Type: 
  Country: None (occurrence: None)
  Receive Date: 20070130
  Receipt Date: 20070115
  Transmission Date: 20070707
  Serious: Yes (Other)
  Sender: FDA-Public Use
  Company Number: 2007US-05387

PATIENT
  Age: 28 Year
  Sex: Female

DRUGS (1)
  1. RAN-CIPROFLOXACIN TABLETS(CIPROFLOXACIN) TABLET [Suspect]
     Indication: KIDNEY INFECTION
     Dosage: QD, ORAL
     Route: 048
     Dates: start: 20061216, end: 20061229

REACTIONS (8)
  - ANXIETY [None]
  - FEELING ABNORMAL [None]
  - INSOMNIA [None]
  - NASOPHARYNGITIS [None]
  - PARAESTHESIA [None]
  - SKIN BURNING SENSATION [None]
  - TENDON PAIN [None]
  - VISUAL DISTURBANCE [None]
